FAERS Safety Report 5320235-3 (Version None)
Quarter: 2007Q2

REPORT INFORMATION
  Report Type: 
  Country: None (occurrence: None)
  Receive Date: 20070509
  Receipt Date: 20070508
  Transmission Date: 20071010
  Serious: Yes (Life-Threatening, Hospitalization)
  Sender: FDA-Public Use
  Company Number: B0469529A

PATIENT
  Age: 32 Year
  Sex: Male

DRUGS (6)
  1. LEXIVA [Suspect]
     Indication: HIV INFECTION
     Dosage: 1400MG TWICE PER DAY
     Route: 048
     Dates: start: 20050922
  2. EPZICOM [Concomitant]
     Indication: HIV INFECTION
     Route: 048
  3. DEPAS [Concomitant]
     Route: 048
  4. MUCOSTA [Concomitant]
     Route: 048
  5. ZITHROMAC [Concomitant]
     Dosage: 600MG PER DAY
     Route: 048
     Dates: end: 20070301
  6. ESANBUTOL [Concomitant]
     Dosage: 750MG PER DAY
     Route: 048
     Dates: end: 20070301

REACTIONS (5)
  - ALPHA 1 FOETOPROTEIN INCREASED [None]
  - METASTASES TO LYMPH NODES [None]
  - ORCHIDECTOMY [None]
  - PAIN [None]
  - TESTIS CANCER [None]
